FAERS Safety Report 14187436 (Version 1)
Quarter: 2017Q4

REPORT INFORMATION
  Report Type: Spontaneous
  Country: US (occurrence: US)
  Receive Date: 20171113
  Receipt Date: 20171113
  Transmission Date: 20180321
  Serious: Yes (Disabling)
  Sender: FDA-Public Use
  Company Number: None

PATIENT
  Age: 43 Year
  Sex: Female
  Weight: 62.1 kg

DRUGS (6)
  1. TRIAMCINOLONE [Suspect]
     Active Substance: TRIAMCINOLONE
     Indication: ECZEMA
     Route: 061
  2. DESONIDE. [Suspect]
     Active Substance: DESONIDE
  3. DUPIXENT [Concomitant]
     Active Substance: DUPILUMAB
  4. LDN [Concomitant]
     Active Substance: NALTREXONE
  5. BETAMETHISONE [Suspect]
     Active Substance: BETAMETHASONE
  6. ATARAX [Concomitant]
     Active Substance: HYDROXYZINE HYDROCHLORIDE

REACTIONS (16)
  - Fatigue [None]
  - Skin infection [None]
  - Burning sensation [None]
  - Red man syndrome [None]
  - Pain [None]
  - Dry skin [None]
  - Impaired healing [None]
  - Erythema [None]
  - Skin exfoliation [None]
  - Rash [None]
  - Oedema [None]
  - Drug intolerance [None]
  - Drug withdrawal syndrome [None]
  - Lymphadenopathy [None]
  - Chills [None]
  - Pruritus [None]

NARRATIVE: CASE EVENT DATE: 20161205
